FAERS Safety Report 18473189 (Version 4)
Quarter: 2021Q2

REPORT INFORMATION
  Report Type: Spontaneous
  Country: CN (occurrence: CN)
  Receive Date: 20201106
  Receipt Date: 20210412
  Transmission Date: 20210717
  Serious: Yes (Other)
  Sender: FDA-Public Use
  Company Number: CN-PFIZER INC-2020422931

PATIENT
  Age: 82 Year
  Sex: Male
  Weight: 62 kg

DRUGS (6)
  1. DIGOXIN. [Interacting]
     Active Substance: DIGOXIN
     Dosage: 0.125 MG, EVERY TWO DAYS
     Route: 048
  2. LINEZOLID. [Suspect]
     Active Substance: LINEZOLID
     Indication: ANTIBIOTIC THERAPY
     Dosage: 600 MG, EVERY 12 H (HOURS)
     Route: 042
  3. LINEZOLID. [Interacting]
     Active Substance: LINEZOLID
     Dosage: 600 MG, ONCE DAILY
     Route: 042
  4. IMIPENEM AND CILASTATIN [Concomitant]
     Active Substance: CILASTATIN SODIUM\IMIPENEM
     Indication: ANTIBIOTIC THERAPY
     Dosage: 500 MG/500 MG, EVERY 8 H
  5. DIGOXIN. [Interacting]
     Active Substance: DIGOXIN
     Indication: CARDIAC FAILURE
     Dosage: 0.25 MG, ONCE DAILY
     Route: 048
  6. DIGOXIN. [Interacting]
     Active Substance: DIGOXIN
     Dosage: 0.125 MG, ONCE DAILY
     Route: 048

REACTIONS (3)
  - Drug interaction [Recovered/Resolved]
  - Thrombocytopenia [Recovered/Resolved]
  - Drug level increased [Recovered/Resolved]
